FAERS Safety Report 21258237 (Version 2)
Quarter: 2022Q3

REPORT INFORMATION
  Report Type: Other
  Country: US (occurrence: None)
  Receive Date: 20220826
  Receipt Date: 20220829
  Transmission Date: 20221027
  Serious: Yes (Hospitalization)
  Sender: FDA-Public Use
  Company Number: US-ROCHE-3164619

PATIENT
  Age: 56 Year
  Sex: Female

DRUGS (2)
  1. OCREVUS [Suspect]
     Active Substance: OCRELIZUMAB
     Indication: Relapsing-remitting multiple sclerosis
     Route: 042
  2. OCREVUS [Suspect]
     Active Substance: OCRELIZUMAB
     Dosage: 600MG EVERY 26 WEEKS FOR 1 YEAR?DATE OF TREATMENT : 27/AUG/2020, 28-AUG-2020, 27-FEB-2020,21-AUG-201
     Route: 042

REACTIONS (1)
  - Oral infection [Recovered/Resolved]

NARRATIVE: CASE EVENT DATE: 20220323
